FAERS Safety Report 5150549-1 (Version None)
Quarter: 2006Q4

REPORT INFORMATION
  Report Type: 
  Country: None (occurrence: None)
  Receive Date: 20061114
  Receipt Date: 20061013
  Transmission Date: 20070319
  Serious: Yes (Hospitalization)
  Sender: FDA-Public Use
  Company Number: US-ROCHE-467468

PATIENT
  Age: 85 Year
  Sex: Male
  Weight: 51.7 kg

DRUGS (1)
  1. BONIVA [Suspect]
     Indication: OSTEOPOROSIS
     Dosage: GIVEN MONTHLY.
     Route: 048
     Dates: start: 20060901, end: 20060901

REACTIONS (6)
  - CHILLS [None]
  - DIARRHOEA [None]
  - DRY SKIN [None]
  - DYSPHAGIA [None]
  - NAUSEA [None]
  - WEIGHT DECREASED [None]
